FAERS Safety Report 7607433-0 (Version None)
Quarter: 2011Q3

REPORT INFORMATION
  Report Type: 
  Country: None (occurrence: None)
  Receive Date: 20110713
  Receipt Date: 20110708
  Transmission Date: 20111222
  Serious: Yes (Hospitalization)
  Sender: FDA-Public Use
  Company Number: US-GILEAD-2011-0036674

PATIENT
  Sex: Female

DRUGS (4)
  1. REVATIO [Concomitant]
  2. LETAIRIS [Suspect]
     Indication: PULMONARY HYPERTENSION
     Route: 048
     Dates: start: 20080821
  3. EPOPROSTENOL SODIUM [Concomitant]
  4. FLOLAN [Concomitant]

REACTIONS (1)
  - CHEST PAIN [None]
